FAERS Safety Report 12837813 (Version 1)
Quarter: 2016Q4

REPORT INFORMATION
  Report Type: Report from Study
  Country: AU (occurrence: AU)
  Receive Date: 20161012
  Receipt Date: 20161012
  Transmission Date: 20170207
  Serious: Yes (Death)
  Sender: FDA-Public Use
  Company Number: AU-ASTRAZENECA-2013SE70584

PATIENT
  Age: 21875 Day
  Sex: Male

DRUGS (3)
  1. COSUDEX [Suspect]
     Active Substance: BICALUTAMIDE
     Route: 048
  2. ANTI-DEPRESSANT [Concomitant]
     Active Substance: UNSPECIFIED INGREDIENT
     Indication: BACK INJURY
  3. ZOLADEX [Suspect]
     Active Substance: GOSERELIN ACETATE
     Dosage: 10.8MG UNKNOWN
     Route: 058
     Dates: start: 20130305

REACTIONS (4)
  - Hot flush [Not Recovered/Not Resolved]
  - Feeling abnormal [Unknown]
  - Death [Fatal]
  - Sleep disorder due to general medical condition, insomnia type [Unknown]

NARRATIVE: CASE EVENT DATE: 20130305
